FAERS Safety Report 13015434 (Version 1)
Quarter: 2016Q4

REPORT INFORMATION
  Report Type: Spontaneous
  Country: US (occurrence: US)
  Receive Date: 20161211
  Receipt Date: 20161211
  Transmission Date: 20170207
  Serious: No
  Sender: FDA-Public Use
  Company Number: US-ELI_LILLY_AND_COMPANY-US201611011424

PATIENT
  Sex: Male

DRUGS (3)
  1. HUMALOG [Suspect]
     Active Substance: INSULIN LISPRO
     Indication: TYPE 1 DIABETES MELLITUS
     Dosage: 8 UNITS ON SLIDING SCALE
     Route: 065
  2. HUMALOG [Suspect]
     Active Substance: INSULIN LISPRO
     Dosage: 8 UNITS ON SLIDING SCALE
  3. HUMALOG [Suspect]
     Active Substance: INSULIN LISPRO
     Dosage: 8 UNITS ON SLIDING SCALE

REACTIONS (1)
  - Blood glucose increased [Recovered/Resolved]
